FAERS Safety Report 16781369 (Version 2)
Quarter: 2019Q3

REPORT INFORMATION
  Report Type: Spontaneous
  Country: US (occurrence: US)
  Receive Date: 20190906
  Receipt Date: 20190925
  Transmission Date: 20191005
  Serious: No
  Sender: FDA-Public Use
  Company Number: US-ASTRAZENECA-2019SF14688

PATIENT
  Sex: Female
  Weight: 97.5 kg

DRUGS (4)
  1. PULMICORT FLEXHALER [Suspect]
     Active Substance: BUDESONIDE
     Indication: PNEUMONIA
     Route: 055
     Dates: start: 20190726
  2. ALBUTEROL. [Concomitant]
     Active Substance: ALBUTEROL
     Indication: COUGH
     Dosage: 1 VIAL NEBILIZER TWICE DAILY
     Route: 065
  3. ALBUTEROL. [Concomitant]
     Active Substance: ALBUTEROL
     Indication: WHEEZING
     Dosage: 1 VIAL NEBILIZER TWICE DAILY
     Route: 065
  4. ALBUTEROL. [Concomitant]
     Active Substance: ALBUTEROL
     Indication: DYSPNOEA
     Dosage: 1 VIAL NEBILIZER TWICE DAILY
     Route: 065

REACTIONS (10)
  - Feeling abnormal [Unknown]
  - Wrong technique in device usage process [Not Recovered/Not Resolved]
  - Product use in unapproved indication [Unknown]
  - Circumstance or information capable of leading to medication error [Not Recovered/Not Resolved]
  - Intentional product misuse [Unknown]
  - Device failure [Unknown]
  - Chest pain [Unknown]
  - Dysgeusia [Unknown]
  - Malaise [Unknown]
  - Vision blurred [Unknown]
